FAERS Safety Report 6192431-7 (Version None)
Quarter: 2009Q2

REPORT INFORMATION
  Report Type: 
  Country: None (occurrence: None)
  Receive Date: 20090518
  Receipt Date: 20090415
  Transmission Date: 20091009
  Serious: No
  Sender: FDA-Public Use
  Company Number: US-BAYER-200918584NA

PATIENT
  Age: 28 Year
  Sex: Female

DRUGS (1)
  1. AVELOX [Suspect]
     Indication: SINUSITIS
     Dosage: TOTAL DAILY DOSE: 400 MG  UNIT DOSE: 400 MG
     Dates: start: 20090410

REACTIONS (7)
  - ADVERSE REACTION [None]
  - ARTHRALGIA [None]
  - DIZZINESS [None]
  - HYPERTENSION [None]
  - PAIN [None]
  - PYREXIA [None]
  - SINUSITIS [None]
